FAERS Safety Report 7105996-5 (Version None)
Quarter: 2010Q4

REPORT INFORMATION
  Report Type: 
  Country: None (occurrence: None)
  Receive Date: 20101116
  Receipt Date: 20101109
  Transmission Date: 20110411
  Serious: Yes (Hospitalization)
  Sender: FDA-Public Use
  Company Number: JP-BRISTOL-MYERS SQUIBB COMPANY-15342363

PATIENT
  Age: 71 Year
  Sex: Female
  Weight: 47 kg

DRUGS (17)
  1. BARACLUDE [Suspect]
     Indication: HEPATITIS B
     Dosage: 20SEP10
     Route: 048
     Dates: start: 20100814, end: 20101009
  2. PREDNISOLONE [Suspect]
     Route: 048
  3. 8-HOUR BAYER [Concomitant]
     Route: 048
  4. ALFAROL [Concomitant]
     Route: 048
  5. GASTER [Concomitant]
     Route: 048
  6. DIOVAN [Concomitant]
     Route: 048
  7. AMLODIPINE [Concomitant]
     Route: 048
  8. VASOLAN [Concomitant]
     Route: 048
  9. ARGAMATE [Concomitant]
     Route: 048
  10. HALCION [Concomitant]
     Route: 048
  11. PURSENNID [Concomitant]
     Route: 048
  12. RYTHMODAN [Concomitant]
     Route: 048
  13. EPADEL [Concomitant]
     Route: 048
  14. MONILAC [Concomitant]
     Route: 048
  15. LAXOBERON [Concomitant]
     Route: 048
  16. HUMALOG [Concomitant]
     Dosage: 1DF=5-6-8 UNITS/D
     Route: 058
  17. LANTUS [Concomitant]
     Dosage: 1DF=7 UNITS/D
     Route: 058

REACTIONS (5)
  - ALTERED STATE OF CONSCIOUSNESS [None]
  - HYPERAMMONAEMIA [None]
  - HYPERGLYCAEMIA [None]
  - LIVER DISORDER [None]
  - RENAL FAILURE [None]
